FAERS Safety Report 4929970-X (Version None)
Quarter: 2006Q1

REPORT INFORMATION
  Report Type: 
  Country: None (occurrence: None)
  Receive Date: 20060302
  Receipt Date: 20060220
  Transmission Date: 20060701
  Serious: Yes (Hospitalization)
  Sender: FDA-Public Use
  Company Number: DE-ABBOTT-06P-062-0325629-00

PATIENT
  Sex: Female
  Weight: 60 kg

DRUGS (9)
  1. KLACID FILMTABLETTEN [Suspect]
     Indication: SUICIDE ATTEMPT
     Route: 048
     Dates: start: 20060220, end: 20060220
  2. MYSTECLIN /GFR/ [Suspect]
     Indication: SUICIDE ATTEMPT
     Route: 048
     Dates: start: 20060220, end: 20060220
  3. MYSTECLIN /GFR/ [Suspect]
     Dates: start: 20060220, end: 20060220
  4. CIPROFLOXACIN [Suspect]
     Indication: SUICIDE ATTEMPT
     Dosage: 10X500MG
     Route: 048
     Dates: start: 20060220, end: 20060220
  5. CAFFEINE [Suspect]
     Indication: SUICIDE ATTEMPT
     Route: 048
     Dates: start: 20060220, end: 20060220
  6. DOXYCYCLINE [Suspect]
     Indication: SUICIDE ATTEMPT
     Dosage: 10X100MG
     Route: 048
     Dates: start: 20060220, end: 20060220
  7. SPARKLING WINE [Suspect]
     Indication: SUICIDE ATTEMPT
     Dosage: HALF A BOTTLE
     Route: 048
     Dates: start: 20060220, end: 20060220
  8. VOLTAREN [Suspect]
     Indication: SUICIDE ATTEMPT
     Route: 048
     Dates: start: 20060220, end: 20060220
  9. ZOPICLONE [Suspect]
     Indication: SUICIDE ATTEMPT
     Route: 048
     Dates: start: 20060220, end: 20060220

REACTIONS (2)
  - SOMNOLENCE [None]
  - SUICIDE ATTEMPT [None]
